FAERS Safety Report 9301644 (Version 1)
Quarter: 2013Q2

REPORT INFORMATION
  Report Type: Spontaneous
  Country: US (occurrence: US)
  Receive Date: 20130521
  Receipt Date: 20130521
  Transmission Date: 20140414
  Serious: Yes (Hospitalization)
  Sender: FDA-Public Use
  Company Number: US-FRI-1000045227

PATIENT
  Age: 67 Year
  Sex: Female

DRUGS (5)
  1. VIIBRYD [Suspect]
     Indication: DEPRESSION
     Dosage: 10 MG
     Route: 048
     Dates: start: 20130510, end: 20130516
  2. VIIBRYD [Suspect]
     Dosage: 20 MG
     Route: 048
     Dates: start: 20130517
  3. XANAX [Concomitant]
     Indication: ANXIETY
  4. LASIX [Concomitant]
     Indication: OEDEMA PERIPHERAL
  5. POTASSIUM [Concomitant]

REACTIONS (5)
  - Pulmonary embolism [Recovering/Resolving]
  - Panic attack [Recovered/Resolved]
  - Chills [Recovered/Resolved]
  - Pyrexia [Recovered/Resolved]
  - Cough [Not Recovered/Not Resolved]
